FAERS Safety Report 7220696-9 (Version None)
Quarter: 2011Q1

REPORT INFORMATION
  Report Type: 
  Country: None (occurrence: None)
  Receive Date: 20110111
  Receipt Date: 20110105
  Transmission Date: 20110831
  Serious: Yes (Hospitalization)
  Sender: FDA-Public Use
  Company Number: US-ELI_LILLY_AND_COMPANY-US201101001234

PATIENT
  Sex: Female

DRUGS (1)
  1. HUMULIN N [Suspect]
     Indication: DIABETES MELLITUS
     Dosage: 53 U, DAILY (1/D)
     Dates: start: 20100501

REACTIONS (2)
  - ROAD TRAFFIC ACCIDENT [None]
  - BLOOD GLUCOSE DECREASED [None]
